FAERS Safety Report 9206878 (Version 3)
Quarter: 2014Q3

REPORT INFORMATION
  Report Type: Spontaneous
  Country: US (occurrence: US)
  Receive Date: 20130403
  Receipt Date: 20140731
  Transmission Date: 20150326
  Serious: Yes (Hospitalization, Disabling, Other)
  Sender: FDA-Public Use
  Company Number: US-009507513-1304USA000990

PATIENT
  Sex: Female
  Weight: 81.63 kg

DRUGS (3)
  1. DIURETIC (UNSPECIFIED) [Concomitant]
     Active Substance: UNSPECIFIED INGREDIENT
     Dosage: UNK
     Dates: start: 1993
  2. NUVARING [Suspect]
     Active Substance: ETHINYL ESTRADIOL\ETONOGESTREL
     Indication: CONTRACEPTION
     Dosage: UNK
     Route: 067
     Dates: start: 2004, end: 2005
  3. NUVARING [Suspect]
     Active Substance: ETHINYL ESTRADIOL\ETONOGESTREL
     Dosage: UNK
     Route: 067
     Dates: start: 20100924, end: 20110409

REACTIONS (20)
  - Gastrointestinal tube insertion [Recovered/Resolved]
  - Depression [Unknown]
  - Musculoskeletal pain [Unknown]
  - Hypokalaemia [Unknown]
  - Cerebrovascular accident [Unknown]
  - Hyperchlorhydria [Unknown]
  - Neck pain [Unknown]
  - Pain in extremity [Unknown]
  - Basilar artery thrombosis [Unknown]
  - Adverse event [Unknown]
  - Faeces hard [Unknown]
  - Pain [Unknown]
  - Menstrual disorder [Unknown]
  - Alopecia [Unknown]
  - Anxiety [Unknown]
  - Hypersensitivity [Unknown]
  - Mammoplasty [Unknown]
  - Thromboembolectomy [Unknown]
  - Maternal exposure before pregnancy [Unknown]
  - Cervical radiculopathy [Unknown]

NARRATIVE: CASE EVENT DATE: 2006
